FAERS Safety Report 4445472-1 (Version None)
Quarter: 2004Q2

REPORT INFORMATION
  Report Type: 
  Country: None (occurrence: None)
  Receive Date: 20040428
  Receipt Date: 20030513
  Transmission Date: 20050107
  Serious: Yes (Other)
  Sender: FDA-Public Use
  Company Number: 200310057BBE

PATIENT
  Age: 59 Year
  Sex: Female

DRUGS (1)
  1. GAMIMUNE N 10% [Suspect]
     Indication: SELECTIVE IGG SUBCLASS DEFICIENCY
     Dosage: 400 G, INTRAVENOUS
     Route: 042
     Dates: start: 20020101

REACTIONS (1)
  - MENINGITIS ASEPTIC [None]
